FAERS Safety Report 10444717 (Version 1)
Quarter: 2014Q3

REPORT INFORMATION
  Report Type: Spontaneous
  Country: US (occurrence: US)
  Receive Date: 20140910
  Receipt Date: 20140910
  Transmission Date: 20150326
  Serious: Yes (Other)
  Sender: FDA-Public Use
  Company Number: US-ACTAVIS-2014-19450

PATIENT

DRUGS (1)
  1. DEXTROAMPHETAMINE-AMPHETAMINE (AELLC) [Suspect]
     Active Substance: DEXTROAMPHETAMINE
     Indication: ATTENTION DEFICIT/HYPERACTIVITY DISORDER
     Dosage: 20 MG, UNKNOWN
     Route: 065

REACTIONS (13)
  - Chest pain [Unknown]
  - Social avoidant behaviour [Unknown]
  - Dizziness [Unknown]
  - Irritability [Unknown]
  - Depressed level of consciousness [Unknown]
  - Muscle spasms [Unknown]
  - Drug ineffective [Unknown]
  - Confusional state [Unknown]
  - Mental impairment [Unknown]
  - Nausea [Unknown]
  - Nervous system disorder [Unknown]
  - Anxiety [Unknown]
  - Vision blurred [Unknown]
